FAERS Safety Report 23437496 (Version 1)
Quarter: 2024Q1

REPORT INFORMATION
  Report Type: Spontaneous
  Country: AU (occurrence: AU)
  Receive Date: 20240124
  Receipt Date: 20240124
  Transmission Date: 20240410
  Serious: Yes (Death, Hospitalization)
  Sender: FDA-Public Use
  Company Number: None

PATIENT
  Age: 70 Year
  Sex: Male

DRUGS (4)
  1. IVABRADINE HYDROCHLORIDE [Suspect]
     Active Substance: IVABRADINE HYDROCHLORIDE
     Indication: Cardiac failure
     Dosage: 5 MG, BID
     Route: 048
     Dates: start: 20230810, end: 20230818
  2. OXAZEPAM [Concomitant]
     Active Substance: OXAZEPAM
     Indication: Anxiety
     Dosage: UNK
  3. ENTRESTO [Concomitant]
     Active Substance: SACUBITRIL\VALSARTAN
     Indication: Product used for unknown indication
     Dosage: UNK
  4. PREDNISOLONE [Concomitant]
     Active Substance: PREDNISOLONE
     Indication: Product used for unknown indication
     Dosage: 10 MG, QD

REACTIONS (10)
  - Intestinal ischaemia [Fatal]
  - Abdominal pain upper [Fatal]
  - Vomiting [Fatal]
  - Tachycardia [Fatal]
  - Vomiting [Fatal]
  - Abdominal pain upper [Fatal]
  - Nausea [Fatal]
  - Vomiting [Fatal]
  - Oxygen saturation abnormal [Fatal]
  - Angina pectoris [Fatal]

NARRATIVE: CASE EVENT DATE: 20230810
